FAERS Safety Report 22200038 (Version 1)
Quarter: 2023Q2

REPORT INFORMATION
  Report Type: Spontaneous
  Country: US (occurrence: US)
  Receive Date: 20230412
  Receipt Date: 20230412
  Transmission Date: 20230721
  Serious: No
  Sender: FDA-Public Use
  Company Number: US-SA-SAC20230410001350

PATIENT
  Age: 18 Year

DRUGS (1)
  1. NEXVIAZYME [Suspect]
     Active Substance: AVALGLUCOSIDASE ALFA-NGPT
     Dosage: UNK
     Route: 065

REACTIONS (3)
  - Drug specific antibody present [Unknown]
  - Blood immunoglobulin G increased [Unknown]
  - Blood immunoglobulin M increased [Unknown]

NARRATIVE: CASE EVENT DATE: 20230317
